FAERS Safety Report 17607513 (Version 1)
Quarter: 2020Q2

REPORT INFORMATION
  Report Type: Spontaneous
  Country: ES (occurrence: ES)
  Receive Date: 20200401
  Receipt Date: 20200401
  Transmission Date: 20200713
  Serious: Yes (Hospitalization)
  Sender: FDA-Public Use
  Company Number: ES-TEVA-2020-ES-1214098

PATIENT
  Age: 66 Year
  Sex: Male

DRUGS (7)
  1. CLEXANE 6.000 UI (60 MG)/ 0,6 ML SOLUCION INYECTABLE EN JERINGA PRECAR [Concomitant]
  2. ATORVASTATINA 40 MG 28 COMPRIMIDOS [Concomitant]
     Active Substance: ATORVASTATIN
     Dosage: 28 TABLETS
  3. ADIRO 100 MG COMPRIMIDOS GASTRORRESISTENTES EFG, 30 COMPRIMIDOS (POLIP [Concomitant]
     Active Substance: ASPIRIN
     Dosage: 30 TABLETS
  4. URBASON 4 MG COMPRIMIDOS , 30 COMPRIMIDOS [Concomitant]
     Active Substance: METHYLPREDNISOLONE
     Dosage: 30 TABLETS
  5. PANTOPRAZOL 20 MG 28 COMPRIMIDOS [Concomitant]
     Dosage: 28 TABLETS
  6. CIPROFLOXACINO 500 MG 14 COMPRIMIDOS [Suspect]
     Active Substance: CIPROFLOXACIN
     Indication: ANAL ABSCESS
     Dosage: 500 MG
     Route: 048
     Dates: start: 20200304, end: 20200310
  7. EMCONCOR COR  2,5 MG COMPRIMIDOS RECUBIERTOS CON PELICULA , 28 COMPRIM [Concomitant]
     Dosage: 28 TABLETS

REACTIONS (2)
  - Tendon disorder [Not Recovered/Not Resolved]
  - Tendon rupture [Not Recovered/Not Resolved]

NARRATIVE: CASE EVENT DATE: 20200312
